FAERS Safety Report 15109330 (Version 2)
Quarter: 2018Q3

REPORT INFORMATION
  Report Type: Spontaneous
  Country: DK (occurrence: DK)
  Receive Date: 20180705
  Receipt Date: 20180717
  Transmission Date: 20181010
  Serious: Yes (Hospitalization)
  Sender: FDA-Public Use
  Company Number: DK-ELI_LILLY_AND_COMPANY-DK201806013396

PATIENT
  Age: 76 Year
  Sex: Female

DRUGS (21)
  1. LAXOBERAL [Concomitant]
     Active Substance: SODIUM PICOSULFATE
     Indication: CONSTIPATION
     Dosage: 15 DF, DAILY (AS NEEDED)
     Route: 048
     Dates: start: 20150918
  2. LARTRUVO [Suspect]
     Active Substance: OLARATUMAB
     Indication: SOFT TISSUE SARCOMA
     Dosage: 1000 MG, UNKNOWN
     Route: 042
     Dates: start: 20180423, end: 20180430
  3. DOXORUBICIN [Concomitant]
     Active Substance: DOXORUBICIN
     Dosage: 70 MG, SINGLE
     Route: 042
     Dates: start: 20180423, end: 20180423
  4. DEXRAZOXANE. [Concomitant]
     Active Substance: DEXRAZOXANE
     Indication: SOFT TISSUE SARCOMA
     Dosage: 700 MG, DAILY
     Route: 042
     Dates: start: 20180423, end: 20180423
  5. DIAZEPAM. [Concomitant]
     Active Substance: DIAZEPAM
     Indication: ANXIETY
     Dosage: 5 MG, PRN (MAX. TID)
     Route: 048
     Dates: start: 20151001
  6. INNOHEP [Concomitant]
     Active Substance: TINZAPARIN SODIUM
     Indication: THROMBOSIS PROPHYLAXIS
     Dosage: 12000 IU, DAILY
     Route: 042
     Dates: start: 20151030, end: 20180508
  7. SERTRALIN KRKA                     /01011402/ [Concomitant]
     Indication: DEPRESSION
     Dosage: 150 MG, DAILY
     Route: 048
     Dates: start: 20151222
  8. DOXORUBICIN [Concomitant]
     Active Substance: DOXORUBICIN
     Indication: SOFT TISSUE SARCOMA
     Dosage: 56 MG, SINGLE
     Route: 042
     Dates: start: 20180323, end: 20180323
  9. LONQUEX [Concomitant]
     Active Substance: LIPEGFILGRASTIM
     Indication: NEUROPATHY PERIPHERAL
     Dosage: 6 MG, OTHER (AT LEAST 24 HOURS AFTER COMPLETION OF TREATMENT)
     Route: 042
     Dates: start: 20180501
  10. MORPHINE [Concomitant]
     Active Substance: MORPHINE
     Indication: PAIN
     Dosage: 20 MG, PRN (MAX. 6 TIMES DAILY)
     Route: 048
     Dates: start: 20151001
  11. PANTOLOC                           /01263204/ [Concomitant]
     Active Substance: PANTOPRAZOLE SODIUM
     Indication: GASTRIC ULCER
     Dosage: 40 MG, DAILY
     Route: 048
     Dates: start: 20151210
  12. IMOCLONE [Concomitant]
     Active Substance: ZOPICLONE
     Indication: INSOMNIA
     Dosage: 7.5 MG, PRN (BEFORE BEDTIME)
     Route: 048
     Dates: start: 20150918
  13. LACTULOSE. [Concomitant]
     Active Substance: LACTULOSE
     Indication: CONSTIPATION
     Dosage: UNK, UNKNOWN
     Route: 048
     Dates: start: 20150918
  14. PARACETAMOL [Concomitant]
     Active Substance: ACETAMINOPHEN
     Indication: PAIN
     Dosage: UNK, PRN (1 OR 2 TABLETS AS NEEDED)
     Route: 048
     Dates: start: 20150918
  15. TRAVATAN [Concomitant]
     Active Substance: TRAVOPROST
     Indication: GLAUCOMA
     Dosage: 1 DF, DAILY
     Route: 050
     Dates: start: 20150831
  16. KLORZOXAZON [Concomitant]
     Active Substance: CHLORZOXAZONE
     Indication: MYALGIA
     Dosage: UNK UNK, PRN (1?2 DF, MAX. TID)
     Route: 048
     Dates: start: 20161128
  17. MACROGOL [Concomitant]
     Active Substance: POLYETHYLENE GLYCOLS
     Indication: CONSTIPATION
     Dosage: UNK, OTHER (BY APPOINTMENT)
     Route: 048
     Dates: start: 20160331
  18. METOPROLOL. [Concomitant]
     Active Substance: METOPROLOL
     Indication: CARDIOVASCULAR EVENT PROPHYLAXIS
     Dosage: 50 MG, DAILY
     Route: 048
     Dates: start: 20180502
  19. FENTANYL. [Concomitant]
     Active Substance: FENTANYL
     Indication: PAIN
     Dosage: 1 DF, UNKNOWN
     Route: 062
     Dates: start: 20160523
  20. DOMPERIDONE [Concomitant]
     Active Substance: DOMPERIDONE
     Indication: ADVERSE DRUG REACTION
     Dosage: 10 MG, PRN (MAX. TID)
     Route: 048
     Dates: start: 20161026
  21. OPTIMOL [Concomitant]
     Indication: GLAUCOMA
     Dosage: 2 DF, DAILY
     Route: 050
     Dates: start: 20140521

REACTIONS (2)
  - Haemorrhage [Recovered/Resolved]
  - Abdominal pain [Unknown]

NARRATIVE: CASE EVENT DATE: 201805
